FAERS Safety Report 11502949 (Version 2)
Quarter: 2016Q3

REPORT INFORMATION
  Report Type: Spontaneous
  Country: US (occurrence: US)
  Receive Date: 20150914
  Receipt Date: 20160915
  Transmission Date: 20161109
  Serious: Yes (Other)
  Sender: FDA-Public Use
  Company Number: US-ASTELLAS-2015US029969

PATIENT
  Age: 77 Year
  Sex: Male

DRUGS (2)
  1. XTANDI [Suspect]
     Active Substance: ENZALUTAMIDE
     Dosage: 3 PILLS, ONCE DAILY
     Route: 048
  2. XTANDI [Suspect]
     Active Substance: ENZALUTAMIDE
     Indication: PROSTATE CANCER
     Dosage: 160 MG (4 CAPSULES), ONCE DAILY
     Route: 048
     Dates: start: 20150623

REACTIONS (15)
  - Decreased appetite [Unknown]
  - Dyspnoea [Unknown]
  - Dyspnoea [Not Recovered/Not Resolved]
  - Abdominal pain upper [Unknown]
  - Dysgeusia [Unknown]
  - Nausea [Not Recovered/Not Resolved]
  - Parosmia [Not Recovered/Not Resolved]
  - Nausea [Unknown]
  - Fatigue [Unknown]
  - Malignant neoplasm progression [Not Recovered/Not Resolved]
  - Prostatic specific antigen increased [Not Recovered/Not Resolved]
  - Drug ineffective [Not Recovered/Not Resolved]
  - Excessive cerumen production [Unknown]
  - Fatigue [Not Recovered/Not Resolved]
  - Dizziness [Unknown]

NARRATIVE: CASE EVENT DATE: 201507
